FAERS Safety Report 5814374-8 (Version None)
Quarter: 2008Q3

REPORT INFORMATION
  Report Type: 
  Country: None (occurrence: None)
  Receive Date: 20080715
  Receipt Date: 20080708
  Transmission Date: 20090109
  Serious: Yes (Death)
  Sender: FDA-Public Use
  Company Number: 163-21880-08041522

PATIENT
  Age: 85 Year
  Sex: Female

DRUGS (1)
  1. REVLIMID [Suspect]
     Indication: MULTIPLE MYELOMA
     Dosage: 10 MG, X28D, ORAL
     Route: 048
     Dates: start: 20080328, end: 20080401

REACTIONS (2)
  - FATIGUE [None]
  - PNEUMONIA [None]
